FAERS Safety Report 7651086-2 (Version None)
Quarter: 2011Q3

REPORT INFORMATION
  Report Type: 
  Country: None (occurrence: None)
  Receive Date: 20110802
  Receipt Date: 20110720
  Transmission Date: 20111222
  Serious: No
  Sender: FDA-Public Use
  Company Number: US-B.I. PHARMACEUTICALS,INC./RIDGEFIELD-2011-BP-18098BP

PATIENT
  Age: 82 Year
  Sex: Female

DRUGS (5)
  1. COZAAR [Concomitant]
  2. PRADAXA [Suspect]
     Dosage: 300 MG
     Route: 048
     Dates: start: 20110621
  3. LOSARTAN POTASSIUM [Concomitant]
  4. DILTIAZEM [Concomitant]
  5. PRADAXA [Suspect]
     Indication: ATRIAL FIBRILLATION
     Dosage: 150 MG
     Route: 048
     Dates: start: 20110606, end: 20110620

REACTIONS (1)
  - BLOOD GLUCOSE FLUCTUATION [None]
